FAERS Safety Report 22132441 (Version 1)
Quarter: 2023Q1

REPORT INFORMATION
  Report Type: Spontaneous
  Country: US (occurrence: US)
  Receive Date: 20230323
  Receipt Date: 20230323
  Transmission Date: 20230418
  Serious: Yes (Other)
  Sender: FDA-Public Use
  Company Number: US-BAYER-2023A035036

PATIENT
  Age: 31 Year
  Sex: Female

DRUGS (1)
  1. KYLEENA [Suspect]
     Active Substance: LEVONORGESTREL
     Indication: Contraception
     Dosage: 17.5?G/DAY
     Route: 015
     Dates: start: 201809

REACTIONS (5)
  - Ectopic pregnancy with contraceptive device [None]
  - Pelvic haemorrhage [None]
  - Blood loss anaemia [None]
  - Hypomenorrhoea [None]
  - Drug ineffective [None]

NARRATIVE: CASE EVENT DATE: 20210101
